FAERS Safety Report 9334279 (Version 1)
Quarter: 2013Q2

REPORT INFORMATION
  Report Type: Spontaneous
  Country: US (occurrence: US)
  Receive Date: 20130606
  Receipt Date: 20130606
  Transmission Date: 20140414
  Serious: No
  Sender: FDA-Public Use
  Company Number: US-AMGEN-USASP2013025419

PATIENT
  Age: 65 Year
  Sex: Female

DRUGS (18)
  1. PROLIA [Suspect]
     Indication: OSTEOARTHRITIS
     Dosage: UNK
     Dates: start: 20121022
  2. LUNESTA [Concomitant]
     Dosage: UNK UNK, AS NECESSARY
  3. BENADRYL                           /00000402/ [Concomitant]
     Indication: HYPERSENSITIVITY
  4. CELEXA                             /00582602/ [Concomitant]
  5. SYNTHROID [Concomitant]
  6. LYRICA [Concomitant]
  7. VERAPAMIL [Concomitant]
  8. PRILOSEC                           /00661201/ [Concomitant]
  9. PERCOCET                           /00446701/ [Concomitant]
  10. DONNATAL [Concomitant]
     Indication: MIGRAINE
     Dosage: UNK UNK, AS NECESSARY
  11. FIORICET [Concomitant]
     Indication: MIGRAINE
  12. TOPAMAX [Concomitant]
  13. SINGULAIR [Concomitant]
  14. LORAZEPAM [Concomitant]
  15. TRAMADOL [Concomitant]
  16. NASONEX [Concomitant]
  17. ADVAIR [Concomitant]
  18. ATROVENT [Concomitant]

REACTIONS (4)
  - Swollen tongue [Recovering/Resolving]
  - Dysphagia [Recovering/Resolving]
  - Renal disorder [Recovering/Resolving]
  - Loose tooth [Recovering/Resolving]
